FAERS Safety Report 5012362-5 (Version None)
Quarter: 2006Q2

REPORT INFORMATION
  Report Type: 
  Country: None (occurrence: None)
  Receive Date: 20060525
  Receipt Date: 20060525
  Transmission Date: 20061013
  Serious: Yes (Hospitalization)
  Sender: FDA-Public Use
  Company Number: None

PATIENT
  Age: 8 Year
  Sex: Male

DRUGS (2)
  1. BICILLIN [Suspect]
  2. CEFTRIAXONE [Suspect]

REACTIONS (30)
  - ASTHENIA [None]
  - BACTERAEMIA [None]
  - CATHETER RELATED INFECTION [None]
  - DECREASED APPETITE [None]
  - DRUG RASH WITH EOSINOPHILIA AND SYSTEMIC SYMPTOMS [None]
  - DYSURIA [None]
  - EOSINOPHILIA [None]
  - ERYTHEMA [None]
  - FEELING HOT [None]
  - GRUNTING [None]
  - HYPERTENSION [None]
  - KLEBSIELLA SEPSIS [None]
  - MALNUTRITION [None]
  - MULTI-ORGAN FAILURE [None]
  - NAUSEA [None]
  - NEPHRITIS INTERSTITIAL [None]
  - OEDEMA PERIPHERAL [None]
  - OESOPHAGITIS [None]
  - OLIGURIA [None]
  - PAIN IN EXTREMITY [None]
  - PSEUDOMONAL SEPSIS [None]
  - RESPIRATION ABNORMAL [None]
  - SHOULDER PAIN [None]
  - STAPHYLOCOCCAL INFECTION [None]
  - SYNCOPE [None]
  - TACHYCARDIA [None]
  - TACHYPNOEA [None]
  - THROMBOCYTOPENIA [None]
  - VOMITING [None]
  - WHITE BLOOD CELL COUNT INCREASED [None]
